FAERS Safety Report 7674740-5 (Version None)
Quarter: 2011Q3

REPORT INFORMATION
  Report Type: 
  Country: None (occurrence: None)
  Receive Date: 20110810
  Receipt Date: 20110801
  Transmission Date: 20111222
  Serious: Yes (Other)
  Sender: FDA-Public Use
  Company Number: BR-GLAXOSMITHKLINE-A0940116A

PATIENT
  Sex: Male
  Weight: 74 kg

DRUGS (1)
  1. SERETIDE [Suspect]
     Indication: CHRONIC OBSTRUCTIVE PULMONARY DISEASE
     Route: 055
     Dates: start: 20110301

REACTIONS (3)
  - CHEILITIS [None]
  - GLOSSODYNIA [None]
  - SYNCOPE [None]
